FAERS Safety Report 21302572 (Version 1)
Quarter: 2022Q3

REPORT INFORMATION
  Report Type: Spontaneous
  Country: US (occurrence: US)
  Receive Date: 20220907
  Receipt Date: 20220907
  Transmission Date: 20221027
  Serious: No
  Sender: FDA-Public Use
  Company Number: US-BAYER-2022A118011

PATIENT
  Age: 67 Year
  Sex: Female

DRUGS (4)
  1. ALEVE [Suspect]
     Active Substance: NAPROXEN SODIUM
     Indication: Back pain
     Dosage: UNK
  2. ALEVE [Suspect]
     Active Substance: NAPROXEN SODIUM
     Indication: Pain in extremity
  3. LIDOCAINE [Concomitant]
     Active Substance: LIDOCAINE
  4. HERBALS [Concomitant]
     Active Substance: HERBALS

REACTIONS (1)
  - Drug ineffective [Unknown]
